FAERS Safety Report 8085532-X (Version None)
Quarter: 2012Q1

REPORT INFORMATION
  Report Type: 
  Country: None (occurrence: None)
  Receive Date: 20120128
  Receipt Date: 20110502
  Transmission Date: 20120608
  Serious: No
  Sender: FDA-Public Use
  Company Number: US-ABBOTT-11P-163-0712820-00

PATIENT
  Age: 37 Year
  Sex: Female

DRUGS (5)
  1. HUMIRA [Suspect]
     Indication: CROHN'S DISEASE
     Dosage: LOADING DOSE ONLY
     Dates: start: 20110313, end: 20110313
  2. ASACOL [Concomitant]
     Indication: CROHN'S DISEASE
  3. ENTOCORT EC [Concomitant]
     Indication: CROHN'S DISEASE
  4. HUMIRA [Suspect]
     Dates: start: 20110313
  5. IRON [Concomitant]
     Indication: ANAEMIA
     Dosage: SUPPLEMENT DAILY, OFTEN FORGETS TO TAKE

REACTIONS (8)
  - ERYTHEMA [None]
  - NODULE [None]
  - ARTHRALGIA [None]
  - NAUSEA [None]
  - PRURITUS GENERALISED [None]
  - GASTROINTESTINAL HAEMORRHAGE [None]
  - INJECTION SITE PAIN [None]
  - PAIN [None]
